FAERS Safety Report 23233261 (Version 1)
Quarter: 2023Q4

REPORT INFORMATION
  Report Type: Other
  Country: DE (occurrence: None)
  Receive Date: 20231128
  Receipt Date: 20231128
  Transmission Date: 20240110
  Serious: Yes (Death, Other)
  Sender: FDA-Public Use
  Company Number: DE-AMGEN-DEUSP2023205929

PATIENT
  Age: 50 Year
  Sex: Male

DRUGS (4)
  1. BEVACIZUMAB [Suspect]
     Active Substance: BEVACIZUMAB
     Indication: Non-small cell lung cancer
     Dosage: UNK
     Route: 065
  2. CARBOPLATIN [Concomitant]
     Active Substance: CARBOPLATIN
  3. PACLITAXEL [Concomitant]
     Active Substance: PACLITAXEL
  4. ATEZOLIZUMAB [Concomitant]
     Active Substance: ATEZOLIZUMAB
     Route: 065

REACTIONS (2)
  - Non-small cell lung cancer metastatic [Unknown]
  - Death [Fatal]

NARRATIVE: CASE EVENT DATE: 20220701
